FAERS Safety Report 17412346 (Version 1)
Quarter: 2020Q1

REPORT INFORMATION
  Report Type: Spontaneous
  Country: GB (occurrence: GB)
  Receive Date: 20200213
  Receipt Date: 20200213
  Transmission Date: 20200409
  Serious: Yes (Other)
  Sender: FDA-Public Use
  Company Number: GB-SA-2020SA034260

PATIENT
  Age: 30 Year

DRUGS (2)
  1. IMATINIB. [Concomitant]
     Active Substance: IMATINIB MESYLATE
     Dosage: 600 MG, QD
     Route: 065
     Dates: start: 2014, end: 2015
  2. ALEMTUZUMAB [Suspect]
     Active Substance: ALEMTUZUMAB
     Dosage: 60 MG
     Route: 065
     Dates: start: 2014

REACTIONS (6)
  - Leukaemia recurrent [Unknown]
  - Cytogenetic abnormality [Unknown]
  - Disease progression [Unknown]
  - Aspiration bone marrow abnormal [Unknown]
  - Philadelphia chromosome positive [Unknown]
  - Graft versus host disease in skin [Unknown]

NARRATIVE: CASE EVENT DATE: 2014
